FAERS Safety Report 13347768 (Version 2)
Quarter: 2019Q3

REPORT INFORMATION
  Report Type: Spontaneous
  Country: FR (occurrence: FR)
  Receive Date: 20170317
  Receipt Date: 20190730
  Transmission Date: 20191004
  Serious: Yes (Other)
  Sender: FDA-Public Use
  Company Number: FR-ABBVIE-17P-056-1905147-00

PATIENT
  Age: 20 Year
  Sex: Male

DRUGS (7)
  1. HUMIRA [Suspect]
     Active Substance: ADALIMUMAB
     Indication: BEHCET^S SYNDROME
     Route: 058
     Dates: start: 201606, end: 201709
  2. SELOKEN [Suspect]
     Active Substance: METOPROLOL
     Indication: MIGRAINE
     Route: 048
     Dates: start: 201602
  3. SELOKEN [Suspect]
     Active Substance: METOPROLOL
     Indication: TACHYCARDIA
     Route: 048
     Dates: start: 201702
  4. ANAFRANIL [Suspect]
     Active Substance: CLOMIPRAMINE HYDROCHLORIDE
     Indication: MIGRAINE
     Route: 048
     Dates: start: 201602, end: 201702
  5. ANAFRANIL [Suspect]
     Active Substance: CLOMIPRAMINE HYDROCHLORIDE
     Route: 048
     Dates: start: 201702
  6. LEVOTHYROXINE SODIUM. [Concomitant]
     Active Substance: LEVOTHYROXINE SODIUM
     Indication: PRODUCT USED FOR UNKNOWN INDICATION
  7. COLCHICINE. [Concomitant]
     Active Substance: COLCHICINE
     Indication: PRODUCT USED FOR UNKNOWN INDICATION

REACTIONS (6)
  - Neck injury [Unknown]
  - Hallucination, auditory [Unknown]
  - Hallucination [Recovered/Resolved]
  - Headache [Unknown]
  - Sleep disorder [Unknown]
  - Head injury [Unknown]

NARRATIVE: CASE EVENT DATE: 201610
